FAERS Safety Report 11653493 (Version 2)
Quarter: 2016Q1

REPORT INFORMATION
  Report Type: Other
  Country: US (occurrence: US)
  Receive Date: 20151022
  Receipt Date: 20160116
  Transmission Date: 20160525
  Serious: No
  Sender: FDA-Public Use
  Company Number: US-DEP_12526_2015

PATIENT
  Age: 49 Year
  Sex: Male
  Weight: 92 kg

DRUGS (2)
  1. NUCYNTA ER [Suspect]
     Active Substance: TAPENTADOL HYDROCHLORIDE
     Indication: HEADACHE
     Route: 048
     Dates: start: 201504
  2. NUCYNTA [Suspect]
     Active Substance: TAPENTADOL HYDROCHLORIDE
     Indication: HEADACHE
     Dosage: EVERY 3-4 HOURS
     Route: 048
     Dates: start: 201504

REACTIONS (1)
  - Medication error [Unknown]

NARRATIVE: CASE EVENT DATE: 201504
